FAERS Safety Report 8230526-4 (Version None)
Quarter: 2012Q1

REPORT INFORMATION
  Report Type: 
  Country: None (occurrence: None)
  Receive Date: 20120320
  Receipt Date: 20120308
  Transmission Date: 20120608
  Serious: Yes (Hospitalization, Other)
  Sender: FDA-Public Use
  Company Number: US-2011-10918

PATIENT
  Age: 43 Year
  Sex: Male

DRUGS (3)
  1. LOSARTAN (LOSARTAN POTASSIUM) [Concomitant]
  2. OPC-41061 (OPC-41061) TABLET TOLVAPTAN [Suspect]
     Indication: CONGENITAL CYSTIC KIDNEY DISEASE
     Dosage: DAILY DOSE, ORAL
     Route: 048
     Dates: start: 20081204
  3. METOPROLOL TARTRATE [Concomitant]

REACTIONS (3)
  - HYPERGLYCAEMIA [None]
  - POLYDIPSIA [None]
  - VIITH NERVE PARALYSIS [None]
